FAERS Safety Report 10951133 (Version 6)
Quarter: 2015Q2

REPORT INFORMATION
  Report Type: Report from Study
  Country: ZA (occurrence: ZA)
  Receive Date: 20150324
  Receipt Date: 20150609
  Transmission Date: 20150821
  Serious: Yes (Death, Hospitalization)
  Sender: FDA-Public Use
  Company Number: ZA-BAYER-2015-038347

PATIENT
  Age: 51 Year
  Sex: Male
  Weight: 42 kg

DRUGS (18)
  1. PYRAZINAMIDE. [Suspect]
     Active Substance: PYRAZINAMIDE
     Indication: PULMONARY TUBERCULOSIS
     Dosage: UNK
     Dates: start: 20150521
  2. NU-COTRIMOX [Concomitant]
     Indication: ANTIFUNGAL PROPHYLAXIS
     Dosage: UNK
  3. MOXIFLOXACIN ORAL [Suspect]
     Active Substance: MOXIFLOXACIN
     Indication: PULMONARY TUBERCULOSIS
     Dosage: UNK
     Dates: start: 20150430
  4. RIFAMPICIN [Concomitant]
     Active Substance: RIFAMPIN
     Dosage: UNK
     Dates: start: 20150420
  5. INH [Concomitant]
     Active Substance: ISONIAZID
     Dosage: UNK
     Dates: start: 20150429
  6. MOXIFLOXACIN ORAL [Suspect]
     Active Substance: MOXIFLOXACIN
     Indication: PULMONARY TUBERCULOSIS
     Dosage: 400 MG, QD
     Route: 048
     Dates: start: 20150304, end: 20150311
  7. RIFINAH [Suspect]
     Active Substance: ISONIAZID\RIFAMPIN
     Indication: PULMONARY TUBERCULOSIS
     Dosage: 150/75 MG; 3 TABLETS DAILY
     Route: 048
     Dates: start: 20150304, end: 20150311
  8. PYRAZINAMIDE. [Suspect]
     Active Substance: PYRAZINAMIDE
     Indication: PULMONARY TUBERCULOSIS
     Dosage: 500 MG, TID
     Route: 048
     Dates: start: 20150304, end: 20150311
  9. VITAMIN B COMPLEX [B3,B6,B2,B1 HCL] [Concomitant]
     Indication: SUPPLEMENTATION THERAPY
     Dosage: 1 DF, QD
     Route: 048
     Dates: start: 20150304
  10. RIFAFOUR [Concomitant]
     Active Substance: ETHAMBUTOL HYDROCHLORIDE\ISONIAZID\PYRAZINAMIDE\RIFAMYCIN
     Dosage: UNK
     Dates: start: 20150413, end: 20150418
  11. ETHAMBUTOL [Concomitant]
     Active Substance: ETHAMBUTOL HYDROCHLORIDE
     Dosage: UNK
     Dates: start: 20150420, end: 20150427
  12. PYRIDOXINE [Suspect]
     Active Substance: PYRIDOXINE
     Indication: SUPPLEMENTATION THERAPY
  13. GASTRON [Concomitant]
     Indication: DIARRHOEA
     Dosage: 2 MG DAILY DOSE
     Route: 048
     Dates: start: 20150303, end: 201503
  14. MAXOLON [Concomitant]
     Active Substance: METOCLOPRAMIDE HYDROCHLORIDE
     Indication: ABDOMINAL PAIN
     Dosage: 1 DF, TID
     Route: 048
     Dates: start: 20150310, end: 201503
  15. MULTIVITAMIN [Concomitant]
     Active Substance: VITAMINS
     Indication: SUPPLEMENTATION THERAPY
     Dosage: 1 DF, QD
     Route: 048
     Dates: start: 20150304
  16. MAYOGEL [Concomitant]
     Indication: ABDOMINAL PAIN UPPER
     Dosage: 30 ML
     Route: 048
     Dates: start: 20150310, end: 201503
  17. RIFAMPICIN [Concomitant]
     Active Substance: RIFAMPIN
     Dosage: UNK
     Dates: start: 20150410, end: 20150412
  18. PYRIDOXINE [Suspect]
     Active Substance: PYRIDOXINE
     Indication: PROPHYLAXIS
     Dosage: 25 MG, BID
     Route: 048
     Dates: start: 20150304, end: 20150311

REACTIONS (4)
  - Drug-induced liver injury [Recovering/Resolving]
  - Pneumonia [Fatal]
  - Blood creatinine increased [None]
  - Hyponatraemia [Recovering/Resolving]

NARRATIVE: CASE EVENT DATE: 20150311
